FAERS Safety Report 6460006-8 (Version None)
Quarter: 2009Q4

REPORT INFORMATION
  Report Type: 
  Country: None (occurrence: None)
  Receive Date: 20091129
  Receipt Date: 20091118
  Transmission Date: 20100525
  Serious: Yes (Hospitalization, Disabling)
  Sender: FDA-Public Use
  Company Number: PHHO2009GB13077

PATIENT
  Sex: Male
  Weight: 76 kg

DRUGS (9)
  1. AFINITOR [Suspect]
     Indication: METASTATIC RENAL CELL CARCINOMA
     Dosage: 10MG/DAY
     Route: 048
     Dates: start: 20090903, end: 20090925
  2. AFINITOR [Suspect]
     Dosage: 5MG/DAY
     Route: 048
     Dates: start: 20091020, end: 20091113
  3. AMLODIPINE [Concomitant]
     Indication: HYPERTENSION
  4. BISOPROLOL FUMARATE [Concomitant]
  5. LISINOPRIL [Concomitant]
  6. METOCLOPRAMIDE [Concomitant]
  7. SIMVASTATIN [Concomitant]
  8. OMEPRAZOLE [Concomitant]
  9. SERTRALINE HYDROCHLORIDE [Concomitant]
     Indication: DEPRESSION

REACTIONS (7)
  - CHEST PAIN [None]
  - DYSPNOEA [None]
  - DYSPNOEA EXERTIONAL [None]
  - FATIGUE [None]
  - MALAISE [None]
  - PNEUMONITIS [None]
  - RESPIRATORY RATE INCREASED [None]
